FAERS Safety Report 14010497 (Version 2)
Quarter: 2017Q4

REPORT INFORMATION
  Report Type: Spontaneous
  Country: US (occurrence: US)
  Receive Date: 20170926
  Receipt Date: 20171005
  Transmission Date: 20180321
  Serious: Yes (Other)
  Sender: FDA-Public Use
  Company Number: US-AMGEN-USASP2017144175

PATIENT
  Age: 65 Year
  Sex: Male

DRUGS (5)
  1. CYCLOPHOSPHAMIDE. [Suspect]
     Active Substance: CYCLOPHOSPHAMIDE
     Indication: CHRONIC LYMPHOCYTIC LEUKAEMIA
     Dosage: 600 MG/M2, Q3WK X 6 (OVER 30 MINUTES ON DAY 2 OF COURSE 1 AND ON DAY 1 OF COURSES 2-6)
     Route: 042
     Dates: start: 20100217
  2. PEGFILGRASTIM [Suspect]
     Active Substance: PEGFILGRASTIM
     Indication: CHRONIC LYMPHOCYTIC LEUKAEMIA
     Dosage: 6 MG, Q3WK X 6 (ON DAY 3 OF COURSE 1 AND ON DAY 2 OF COURSES 2-6)
     Route: 058
     Dates: start: 20100217
  3. BEVACIZUMAB. [Suspect]
     Active Substance: BEVACIZUMAB
     Indication: CHRONIC LYMPHOCYTIC LEUKAEMIA
     Dosage: 15 MG/KG, Q3WK X 6 (OVER 30-90 MINUTES DAY 1 OF COURSES 1-5 AND ON DAYS 1, 22, AND 43 OF COURSE 6)
     Route: 042
     Dates: start: 20100217
  4. RITUXIMAB. [Suspect]
     Active Substance: RITUXIMAB
     Indication: CHRONIC LYMPHOCYTIC LEUKAEMIA
     Dosage: 375 MG/M2, Q3WK X 6 (OVER 2-4 HOURS ON DAYS 2 AND 3 OF COURSE 1 AND ON DAY 1 OF COURSES 2-6)
     Route: 042
     Dates: start: 20100217
  5. PENTOSTATIN. [Suspect]
     Active Substance: PENTOSTATIN
     Indication: CHRONIC LYMPHOCYTIC LEUKAEMIA
     Dosage: 2 MG/M2, Q3WK X 6 (OVER 30 MINUTES ON DAY 2 OF COURSE 1 AND ON DAY 1 OF COURSES 2-6)
     Route: 042
     Dates: start: 20100217

REACTIONS (3)
  - Neutrophil count abnormal [Recovered/Resolved]
  - Neutrophil count decreased [Unknown]
  - Headache [Unknown]

NARRATIVE: CASE EVENT DATE: 20100310
